FAERS Safety Report 4738011-9 (Version None)
Quarter: 2005Q3

REPORT INFORMATION
  Report Type: 
  Country: None (occurrence: None)
  Receive Date: 20050809
  Receipt Date: 20050727
  Transmission Date: 20060218
  Serious: Yes (Hospitalization)
  Sender: FDA-Public Use
  Company Number: 2005AP04080

PATIENT
  Age: 67 Year
  Sex: Female

DRUGS (23)
  1. ATENOLOL [Suspect]
     Route: 048
     Dates: start: 20050401
  2. ZESTRIL [Suspect]
     Route: 048
     Dates: start: 20020101
  3. XELODA [Suspect]
     Indication: BREAST CANCER
     Dosage: D1-14 1800MG
     Dates: start: 20050524
  4. XELODA [Suspect]
     Dosage: D1-14 1800MG
     Dates: start: 20050607
  5. XELODA [Suspect]
     Dates: start: 20050622
  6. TAXOTERE [Suspect]
     Indication: BREAST CANCER
     Dosage: DAY 1-8
     Route: 042
     Dates: start: 20050524
  7. TAXOTERE [Suspect]
     Dosage: DAY 1-8
     Route: 042
     Dates: start: 20050531
  8. TAXOTERE [Suspect]
     Dosage: DAY 1
     Route: 042
     Dates: start: 20050614
  9. TAXOTERE [Suspect]
     Dosage: DAY 8
     Route: 042
     Dates: start: 20050622
  10. LASIX [Suspect]
     Route: 048
     Dates: start: 20000101
  11. METFORMIN [Suspect]
     Route: 048
     Dates: start: 20020101
  12. AVANDIA [Suspect]
     Route: 048
     Dates: start: 20040101
  13. NEXIUM [Concomitant]
     Route: 048
  14. LIPITOR [Concomitant]
     Route: 048
  15. DETROL [Concomitant]
     Route: 048
  16. QUININE SULPHATE [Concomitant]
     Route: 048
     Dates: start: 20040101
  17. XALATAN [Concomitant]
     Route: 048
     Dates: start: 20030101
  18. ASPIRIN [Concomitant]
     Route: 048
     Dates: start: 20040101
  19. DECADRON [Concomitant]
     Route: 042
     Dates: start: 20050301
  20. DECADRON [Concomitant]
     Route: 048
     Dates: start: 20050302
  21. KYTRIL [Concomitant]
     Route: 042
     Dates: start: 20050301
  22. EPIRUBICIN [Concomitant]
     Dosage: FOUR CYCLES
     Dates: start: 20050301, end: 20050504
  23. CYCLOPHOSPHAMIDE [Concomitant]
     Dosage: FOUR CYCLES
     Dates: start: 20050301, end: 20050504

REACTIONS (1)
  - RENAL FAILURE ACUTE [None]
